FAERS Safety Report 11325805 (Version 1)
Quarter: 2015Q3

REPORT INFORMATION
  Report Type: Spontaneous
  Country: JP (occurrence: JP)
  Receive Date: 20150731
  Receipt Date: 20150731
  Transmission Date: 20151125
  Serious: Yes (Hospitalization)
  Sender: FDA-Public Use
  Company Number: JP-PFIZER INC-2015253902

PATIENT
  Age: 56 Year
  Sex: Male
  Weight: 46 kg

DRUGS (22)
  1. ELPLAT [Suspect]
     Active Substance: OXALIPLATIN
     Indication: PANCREATIC CARCINOMA
     Dosage: 125 MG, 1X/DAY, (127.5 MG/BODY- 85.7 MG/M2)
     Route: 041
     Dates: start: 20141020, end: 20141020
  2. CAMPTO [Suspect]
     Active Substance: IRINOTECAN
     Dosage: 220 MG, 1X/DAY
     Route: 041
     Dates: start: 20141203, end: 20141203
  3. ELPLAT [Suspect]
     Active Substance: OXALIPLATIN
     Dosage: 125 MG, 1X/DAY (125 MG/BODY - 84 MG/M2)
     Route: 041
     Dates: start: 20141111, end: 20141111
  4. LEVOFOLINATE YAKULT [Suspect]
     Active Substance: LEVOLEUCOVORIN CALCIUM
     Indication: PANCREATIC CARCINOMA
     Dosage: 300 MG, 1X/DAY (300 MG/BODY - 201.6 MG/M2))
     Route: 041
     Dates: start: 20141020, end: 20141020
  5. LEVOFOLINATE YAKULT [Suspect]
     Active Substance: LEVOLEUCOVORIN CALCIUM
     Dosage: 295 MG, 1X/DAY
     Route: 041
     Dates: start: 20150121, end: 20150121
  6. CAMPTO [Suspect]
     Active Substance: IRINOTECAN
     Indication: PANCREATIC CARCINOMA
     Dosage: 225 MG, 1X/DAY (225 MG/BODY - 151.2 MG/M2)
     Route: 041
     Dates: start: 20141020, end: 20141020
  7. CAMPTO [Suspect]
     Active Substance: IRINOTECAN
     Dosage: 220 MG, 1X/DAY (220 MG/BODY - 147.8 MG/M2)
     Route: 041
     Dates: start: 20141111, end: 20141111
  8. CAMPTO [Suspect]
     Active Substance: IRINOTECAN
     Dosage: 220 MG, 1X/DAY
     Route: 041
     Dates: start: 20141217, end: 20141217
  9. ELPLAT [Suspect]
     Active Substance: OXALIPLATIN
     Dosage: 125 MG, 1X/DAY
     Route: 041
     Dates: start: 20141217, end: 20141217
  10. LEVOFOLINATE YAKULT [Suspect]
     Active Substance: LEVOLEUCOVORIN CALCIUM
     Dosage: 295 MG, 1X/DAY
     Route: 041
     Dates: start: 20141203, end: 20141203
  11. ELPLAT [Suspect]
     Active Substance: OXALIPLATIN
     Dosage: 125 MG, 1X/DAY
     Route: 041
     Dates: start: 20150121, end: 20150121
  12. LEVOFOLINATE YAKULT [Suspect]
     Active Substance: LEVOLEUCOVORIN CALCIUM
     Dosage: 295 MG, 1X/DAY
     Route: 041
     Dates: start: 20150204, end: 20150204
  13. LEVOFOLINATE YAKULT [Suspect]
     Active Substance: LEVOLEUCOVORIN CALCIUM
     Dosage: 295 MG, 1X/DAY
     Route: 041
     Dates: start: 20150107, end: 20150107
  14. CAMPTO [Suspect]
     Active Substance: IRINOTECAN
     Dosage: 220 MG, 1X/DAY
     Route: 041
     Dates: start: 20150107, end: 20150107
  15. LEVOFOLINATE YAKULT [Suspect]
     Active Substance: LEVOLEUCOVORIN CALCIUM
     Dosage: 295 MG, 1X/DAY (295 MG/BODY - 198.3 MG/M2)
     Route: 041
     Dates: start: 20141111, end: 20141111
  16. CAMPTO [Suspect]
     Active Substance: IRINOTECAN
     Dosage: 220 MG, 1X/DAY
     Route: 041
     Dates: start: 20150121, end: 20150121
  17. ELPLAT [Suspect]
     Active Substance: OXALIPLATIN
     Dosage: 125 MG, 1X/DAY
     Route: 041
     Dates: start: 20141203, end: 20141203
  18. 5-FU [Concomitant]
     Active Substance: FLUOROURACIL
     Indication: PANCREATIC CARCINOMA
     Dosage: 3600 MG, CYCLIC, (3600 MG/BODY/D1-2 - 2419.4 MG/M2/D1-2)
     Route: 042
     Dates: start: 20141020, end: 20150204
  19. CAMPTO [Suspect]
     Active Substance: IRINOTECAN
     Dosage: 220 MG, 1X/DAY
     Route: 041
     Dates: start: 20150204, end: 20150204
  20. ELPLAT [Suspect]
     Active Substance: OXALIPLATIN
     Dosage: 125 MG, 1X/DAY
     Route: 041
     Dates: start: 20150107, end: 20150107
  21. LEVOFOLINATE YAKULT [Suspect]
     Active Substance: LEVOLEUCOVORIN CALCIUM
     Dosage: 295 MG, 1X/DAY
     Route: 041
     Dates: start: 20141217, end: 20141217
  22. 5-FU [Concomitant]
     Active Substance: FLUOROURACIL
     Dosage: 3550 MG, CYCLIC, (3550 MG/BODY/D1-2 (2385.8 MG/M2/D1-2))
     Route: 042
     Dates: start: 20141111, end: 20141111

REACTIONS (10)
  - Fatigue [Unknown]
  - Pneumonia [Unknown]
  - Pyrexia [Unknown]
  - Neutrophil count decreased [Unknown]
  - Herpes zoster [Unknown]
  - Peripheral sensory neuropathy [Unknown]
  - White blood cell count decreased [Unknown]
  - Haemoglobin decreased [Unknown]
  - Diarrhoea [Unknown]
  - Decreased appetite [Unknown]

NARRATIVE: CASE EVENT DATE: 20141031
